FAERS Safety Report 21404533 (Version 1)
Quarter: 2022Q4

REPORT INFORMATION
  Report Type: Spontaneous
  Country: None (occurrence: US)
  Receive Date: 20221003
  Receipt Date: 20221003
  Transmission Date: 20230113
  Serious: Yes (Other)
  Sender: FDA-Public Use
  Company Number: US-Alva-Amco Pharmacal Companies, Inc.-2133428

PATIENT

DRUGS (1)
  1. DIUREX ULTRA [Suspect]
     Active Substance: CAFFEINE
     Indication: Fluid retention
     Route: 048
     Dates: start: 20220914, end: 20220926

REACTIONS (1)
  - Palpitations [Recovering/Resolving]

NARRATIVE: CASE EVENT DATE: 20220926
